FAERS Safety Report 9315074 (Version 2)
Quarter: 2013Q2

REPORT INFORMATION
  Report Type: Spontaneous
  Country: US (occurrence: US)
  Receive Date: 20130529
  Receipt Date: 20130529
  Transmission Date: 20140414
  Serious: Yes (Hospitalization, Other)
  Sender: FDA-Public Use
  Company Number: US-MYLANLABS-2013S1005649

PATIENT
  Age: 20 Year
  Sex: Female

DRUGS (3)
  1. VALACYCLOVIR [Suspect]
     Indication: ORAL HERPES
     Route: 048
     Dates: start: 20130210, end: 20130211
  2. TYLENOL [Concomitant]
     Indication: BACK PAIN
     Route: 048
  3. ADVIL [Concomitant]
     Indication: BACK PAIN
     Route: 048

REACTIONS (1)
  - Renal failure [Recovered/Resolved]
